FAERS Safety Report 18850411 (Version 1)
Quarter: 2021Q1

REPORT INFORMATION
  Report Type: Spontaneous
  Country: US (occurrence: US)
  Receive Date: 20210205
  Receipt Date: 20210205
  Transmission Date: 20210420
  Serious: Yes (Hospitalization, Other)
  Sender: FDA-Public Use
  Company Number: US-JNJFOC-20210202892

PATIENT
  Age: 48 Year
  Sex: Female
  Weight: 130.1 kg

DRUGS (1)
  1. INVOKANA [Suspect]
     Active Substance: CANAGLIFLOZIN
     Indication: TYPE 2 DIABETES MELLITUS
     Route: 048
     Dates: end: 20190210

REACTIONS (5)
  - Necrotising soft tissue infection [Recovered/Resolved]
  - Abscess limb [Recovered/Resolved]
  - Systemic inflammatory response syndrome [Unknown]
  - Perineal infection [Recovered/Resolved]
  - Diabetes mellitus inadequate control [Unknown]

NARRATIVE: CASE EVENT DATE: 201902
